FAERS Safety Report 17392358 (Version 2)
Quarter: 2020Q1

REPORT INFORMATION
  Report Type: Spontaneous
  Country: JP (occurrence: JP)
  Receive Date: 20200207
  Receipt Date: 20200210
  Transmission Date: 20200409
  Serious: No
  Sender: FDA-Public Use
  Company Number: NVSJ2020JP001744

PATIENT

DRUGS (1)
  1. AFINITOR [Suspect]
     Active Substance: EVEROLIMUS
     Indication: OSTEOSARCOMA
     Dosage: 10 MG, UNK
     Route: 048

REACTIONS (2)
  - Hyponatraemia [Unknown]
  - Product use in unapproved indication [Unknown]
